FAERS Safety Report 19936433 (Version 2)
Quarter: 2024Q3

REPORT INFORMATION
  Report Type: Spontaneous
  Country: US (occurrence: US)
  Receive Date: 20211008
  Receipt Date: 20240813
  Transmission Date: 20241017
  Serious: No
  Sender: SPROUT PHARMACEUTICALS
  Company Number: US-SPROUT PHARMACEUTICALS, INC.-2021SP000118

PATIENT
  Sex: Female
  Weight: 65.83 kg

DRUGS (2)
  1. ADDYI [Suspect]
     Active Substance: FLIBANSERIN
     Indication: Libido decreased
     Route: 048
     Dates: start: 2018, end: 202405
  2. SYNTHROID [Concomitant]
     Active Substance: LEVOTHYROXINE SODIUM
     Indication: Hypothyroidism
     Route: 048
     Dates: start: 1977, end: 202405

REACTIONS (5)
  - Blood pressure decreased [Recovered/Resolved]
  - Product use in unapproved indication [Recovered/Resolved]
  - Nervousness [Not Recovered/Not Resolved]
  - Malaise [Recovered/Resolved]
  - Intentional product use issue [Recovered/Resolved]
